FAERS Safety Report 4454691-X (Version None)
Quarter: 2004Q3

REPORT INFORMATION
  Report Type: 
  Country: None (occurrence: None)
  Receive Date: 20040920
  Receipt Date: 20040920
  Transmission Date: 20050211
  Serious: Yes (Death)
  Sender: FDA-Public Use
  Company Number: None

PATIENT
  Age: 22 Year
  Sex: Female
  Weight: 41.7309 kg

DRUGS (1)
  1. TRAZODONE HCL [Suspect]
     Indication: AGGRESSION
     Dosage: DAILY TID ORAL
     Route: 048
     Dates: start: 20030101, end: 20040508

REACTIONS (8)
  - JAUNDICE [None]
  - MALAISE [None]
  - PLEURISY [None]
  - RASH [None]
  - SWELLING FACE [None]
  - URTICARIA [None]
  - WEIGHT DECREASED [None]
  - WHITE BLOOD CELL COUNT INCREASED [None]
